FAERS Safety Report 14633420 (Version 2)
Quarter: 2018Q1

REPORT INFORMATION
  Report Type: Spontaneous
  Country: JP (occurrence: JP)
  Receive Date: 20180313
  Receipt Date: 20180321
  Transmission Date: 20180509
  Serious: Yes (Other)
  Sender: FDA-Public Use
  Company Number: JP-AMGEN-JPNSP2018034532

PATIENT
  Age: 71 Year
  Sex: Female

DRUGS (1)
  1. ENBREL [Suspect]
     Active Substance: ETANERCEPT
     Indication: PRODUCT USED FOR UNKNOWN INDICATION
     Dosage: 25 MG, ONCE IN 20 DAYS
     Route: 065
     Dates: start: 2014

REACTIONS (7)
  - Rash [Unknown]
  - Malaise [Unknown]
  - Chills [Unknown]
  - Vasculitis [Unknown]
  - Oral mucosa erosion [Unknown]
  - Sjogren^s syndrome [Unknown]
  - Pruritus [Unknown]
